FAERS Safety Report 14063506 (Version 1)
Quarter: 2017Q4

REPORT INFORMATION
  Report Type: Spontaneous
  Country: AU (occurrence: AU)
  Receive Date: 20171009
  Receipt Date: 20171009
  Transmission Date: 20180321
  Serious: Yes (Other)
  Sender: FDA-Public Use
  Company Number: AU-ASTRAZENECA-2017SF01389

PATIENT
  Sex: Female

DRUGS (9)
  1. LIPITOR [Concomitant]
     Active Substance: ATORVASTATIN CALCIUM
  2. ZOLOFT [Concomitant]
     Active Substance: SERTRALINE HYDROCHLORIDE
  3. STELAZINE [Concomitant]
     Active Substance: TRIFLUOPERAZINE HYDROCHLORIDE
  4. KARVEA [Concomitant]
     Active Substance: IRBESARTAN
  5. MOBIC [Concomitant]
     Active Substance: MELOXICAM
  6. FISH OIL [Concomitant]
     Active Substance: FISH OIL
  7. PANADOL [Concomitant]
     Active Substance: ACETAMINOPHEN
  8. OSTELIN (ERGOCALCIFEROL) [Concomitant]
     Active Substance: ERGOCALCIFEROL
  9. SYMBICORT [Suspect]
     Active Substance: BUDESONIDE\FORMOTEROL FUMARATE DIHYDRATE
     Route: 055

REACTIONS (5)
  - Neutropenia [Unknown]
  - Alopecia [Unknown]
  - Abnormal loss of weight [Unknown]
  - Pruritus [Unknown]
  - Vulvovaginal candidiasis [Unknown]
